FAERS Safety Report 5474607-7 (Version None)
Quarter: 2007Q4

REPORT INFORMATION
  Report Type: 
  Country: None (occurrence: None)
  Receive Date: 20071002
  Receipt Date: 20070928
  Transmission Date: 20080405
  Serious: Yes (Other)
  Sender: FDA-Public Use
  Company Number: US-GENENTECH-246168

PATIENT
  Sex: Female

DRUGS (6)
  1. LUCENTIS [Suspect]
     Indication: DRUG USE FOR UNKNOWN INDICATION
     Dates: start: 20060701
  2. BETA BLOCKER (UNK INGREDIENTS) [Concomitant]
     Indication: DRUG USE FOR UNKNOWN INDICATION
  3. CHOLESTEROL LOWERING DRUG [Concomitant]
     Indication: BLOOD CHOLESTEROL INCREASED
  4. ORAL ANTIDIABETIC DRUG NOS [Concomitant]
     Indication: DIABETES MELLITUS
  5. VITALINE VITAMIN [Concomitant]
     Indication: DRUG USE FOR UNKNOWN INDICATION
  6. SYNTHROID [Concomitant]
     Indication: DRUG USE FOR UNKNOWN INDICATION

REACTIONS (2)
  - CATARACT [None]
  - FOREIGN BODY SENSATION IN EYES [None]
